FAERS Safety Report 8206064-1 (Version None)
Quarter: 2012Q1

REPORT INFORMATION
  Report Type: 
  Country: None (occurrence: None)
  Receive Date: 20120313
  Receipt Date: 20120227
  Transmission Date: 20120608
  Serious: Yes (Other)
  Sender: FDA-Public Use
  Company Number: CHPA2012US003521

PATIENT
  Age: 28 Year
  Sex: Female

DRUGS (1)
  1. EXCEDRIN (MIGRAINE) [Suspect]
     Dosage: 2 DF, UNK
     Route: 048
     Dates: end: 20110824

REACTIONS (4)
  - HYPERSENSITIVITY [None]
  - VISUAL ACUITY REDUCED [None]
  - URTICARIA [None]
  - EOSINOPHILIC CELLULITIS [None]
